FAERS Safety Report 19321468 (Version 1)
Quarter: 2021Q2

REPORT INFORMATION
  Report Type: Report from Study
  Country: US (occurrence: US)
  Receive Date: 20210528
  Receipt Date: 20210528
  Transmission Date: 20210717
  Serious: Yes (Death, Hospitalization, Other)
  Sender: FDA-Public Use
  Company Number: US-ROCHE-2623183

PATIENT
  Age: 73 Year
  Sex: Male
  Weight: 73 kg

DRUGS (24)
  1. ENOXAPARIN [Concomitant]
     Active Substance: ENOXAPARIN
     Dates: start: 20200519
  2. LORAZEPAM. [Concomitant]
     Active Substance: LORAZEPAM
     Dosage: 0.5?1MG Q8 WITH 1MG Q4 PRN
     Dates: start: 20200609
  3. REMDESIVIR. [Concomitant]
     Active Substance: REMDESIVIR
  4. METHADONE [Concomitant]
     Active Substance: METHADONE HYDROCHLORIDE
     Route: 048
     Dates: start: 20200519
  5. PRAMIPEXOLE. [Concomitant]
     Active Substance: PRAMIPEXOLE
     Dosage: NIGHTLY
     Dates: start: 20200609
  6. TOCILIZUMAB. [Suspect]
     Active Substance: TOCILIZUMAB
     Indication: COVID-19
     Route: 042
     Dates: start: 20200519, end: 20200519
  7. PREDNISONE. [Concomitant]
     Active Substance: PREDNISONE
     Dates: start: 20200519
  8. SIMVASTATIN. [Concomitant]
     Active Substance: SIMVASTATIN
     Dates: start: 20200519
  9. TAMSULOSIN [Concomitant]
     Active Substance: TAMSULOSIN
     Dates: start: 20200519
  10. DILAUDID [Concomitant]
     Active Substance: HYDROMORPHONE HYDROCHLORIDE
     Dosage: GTT 0.6MG/HR WITH BOLUS 1.5MG IV Q 30, MINUTES FOR PRN PAIN
     Route: 042
     Dates: start: 20200609
  11. ASA [Concomitant]
     Active Substance: ASPIRIN
     Dates: start: 20200519
  12. MIRTAZAPINE. [Concomitant]
     Active Substance: MIRTAZAPINE
     Dosage: EVERY BEDTIME (GHS)
     Dates: start: 20200519
  13. VALACYCLOVIR [Concomitant]
     Active Substance: VALACYCLOVIR HYDROCHLORIDE
     Dates: start: 20200519
  14. HEPARIN [Concomitant]
     Active Substance: HEPARIN SODIUM
     Dates: start: 20200609
  15. ESOMEPRAZOLE. [Concomitant]
     Active Substance: ESOMEPRAZOLE MAGNESIUM
     Dates: start: 20200519
  16. SERTRALINE [Concomitant]
     Active Substance: SERTRALINE HYDROCHLORIDE
     Dates: start: 20200519
  17. FAMOTIDINE. [Concomitant]
     Active Substance: FAMOTIDINE
     Dates: start: 20200609
  18. PREGABALIN. [Concomitant]
     Active Substance: PREGABALIN
     Dosage: QPM
     Dates: start: 20200609
  19. SOLU?MEDROL [Concomitant]
     Active Substance: METHYLPREDNISOLONE SODIUM SUCCINATE
     Dates: start: 202005
  20. PRAMIPEXOLE. [Concomitant]
     Active Substance: PRAMIPEXOLE
     Dosage: NIGHTLY
     Dates: start: 20200519
  21. HALDOL [Concomitant]
     Active Substance: HALOPERIDOL
     Dosage: 0.5?1 MG PRN
     Dates: start: 20200609
  22. METHADONE [Concomitant]
     Active Substance: METHADONE HYDROCHLORIDE
     Dates: start: 20200609
  23. SULFAMETHOXAZOLE/TRIMETHOPRIM [Concomitant]
     Active Substance: SULFAMETHOXAZOLE\TRIMETHOPRIM
     Dosage: 1 TABLET
     Dates: start: 20200519
  24. ALBUTEROL. [Concomitant]
     Active Substance: ALBUTEROL
     Dosage: 2 PUFFS Q4
     Dates: start: 20200609

REACTIONS (3)
  - Arterial thrombosis [Unknown]
  - Peripheral ischaemia [Recovered/Resolved]
  - Respiratory disorder [Fatal]

NARRATIVE: CASE EVENT DATE: 20200526
